FAERS Safety Report 8928838 (Version 2)
Quarter: 2013Q1

REPORT INFORMATION
  Report Type: Spontaneous
  Country: FR (occurrence: FR)
  Receive Date: 20121128
  Receipt Date: 20130115
  Transmission Date: 20140127
  Serious: Yes (Hospitalization, Other)
  Sender: FDA-Public Use
  Company Number: FR-AMGEN-FRASP2012075969

PATIENT
  Age: 30 Year
  Sex: Male
  Weight: 83 kg

DRUGS (8)
  1. ENBREL [Suspect]
     Indication: ANKYLOSING SPONDYLITIS
     Dosage: 50 MG, WEEKLY
     Route: 058
     Dates: start: 2010, end: 20121017
  2. METHOTREXATE [Concomitant]
     Indication: ANKYLOSING SPONDYLITIS
     Dosage: 10 MG, WEEKLY
     Dates: start: 2006
  3. BI-PROFENID [Concomitant]
     Dosage: 300 MG, 1X/DAY
  4. CORTANCYL [Concomitant]
     Dosage: 13 MG, 1X/DAY
  5. INIPOMP [Concomitant]
     Dosage: 40 MG, 1X/DAY
  6. ACUPAN [Concomitant]
     Dosage: IN CASE OF PAIN
  7. LEDERFOLIN [Concomitant]
     Dosage: 1 DF, QD
  8. PARIET [Concomitant]
     Dosage: 10 MG, 1X/DAY
     Route: 048

REACTIONS (4)
  - Necrotising retinitis [Not Recovered/Not Resolved]
  - Retinal vasculitis [Unknown]
  - Visual field defect [Unknown]
  - Vitreous haemorrhage [Recovering/Resolving]
